FAERS Safety Report 5684241-1 (Version None)
Quarter: 2008Q1

REPORT INFORMATION
  Report Type: 
  Country: None (occurrence: None)
  Receive Date: 20080327
  Receipt Date: 20080327
  Transmission Date: 20080703
  Serious: Yes (Hospitalization)
  Sender: FDA-Public Use
  Company Number: None

PATIENT
  Age: 63 Year
  Sex: Female
  Weight: 61.2356 kg

DRUGS (1)
  1. CLONAZEPAM [Suspect]
     Indication: DEPRESSION
     Dosage: 0.5MG  3 X DAILY  MOUTH
     Route: 048
     Dates: start: 20070803, end: 20070815

REACTIONS (3)
  - HEPATIC ENZYME INCREASED [None]
  - NONSPECIFIC REACTION [None]
  - WHITE BLOOD CELL COUNT INCREASED [None]
